FAERS Safety Report 11654618 (Version 5)
Quarter: 2017Q2

REPORT INFORMATION
  Report Type: Spontaneous
  Country: US (occurrence: US)
  Receive Date: 20151023
  Receipt Date: 20170619
  Transmission Date: 20170829
  Serious: Yes (Other)
  Sender: FDA-Public Use
  Company Number: US-PFIZER INC-2015192506

PATIENT
  Age: 57 Year
  Sex: Male

DRUGS (2)
  1. XARELTO [Concomitant]
     Active Substance: RIVAROXABAN
     Dosage: UNK
  2. LYRICA [Suspect]
     Active Substance: PREGABALIN
     Indication: NEUROPATHY PERIPHERAL
     Dosage: 150 MG, TWICE DAILY (ONE CAPSULE BID)
     Route: 048

REACTIONS (6)
  - Loss of personal independence in daily activities [Unknown]
  - Drug dispensing error [Unknown]
  - Eye disorder [Unknown]
  - Somnolence [Unknown]
  - Glaucoma [Unknown]
  - Visual impairment [Unknown]
